FAERS Safety Report 7587712-6 (Version None)
Quarter: 2011Q3

REPORT INFORMATION
  Report Type: 
  Country: None (occurrence: None)
  Receive Date: 20110704
  Receipt Date: 20110621
  Transmission Date: 20111222
  Serious: Yes (Other)
  Sender: FDA-Public Use
  Company Number: US-ELI_LILLY_AND_COMPANY-US201106006751

PATIENT
  Age: 65 Year
  Sex: Female

DRUGS (5)
  1. KLONOPIN [Concomitant]
     Dosage: UNK, PRN
  2. OPIOIDS [Concomitant]
  3. CYMBALTA [Suspect]
     Indication: MAJOR DEPRESSION
     Dosage: 90 MG, UNK
     Dates: start: 20101201
  4. OXYCODONE HCL [Concomitant]
  5. LAMICTAL [Concomitant]
     Dosage: 450 MG, UNK

REACTIONS (4)
  - PURPURA [None]
  - DIZZINESS [None]
  - MUSCLE TWITCHING [None]
  - RASH VESICULAR [None]
